FAERS Safety Report 23027413 (Version 1)
Quarter: 2023Q4

REPORT INFORMATION
  Report Type: Spontaneous
  Country: US (occurrence: US)
  Receive Date: 20231004
  Receipt Date: 20231004
  Transmission Date: 20240109
  Serious: No
  Sender: FDA-Public Use
  Company Number: US-MELINTA THERAPEUTICS, LLC-US-MLNT-23-00367

PATIENT
  Age: 77 Year
  Sex: Male

DRUGS (2)
  1. KIMYRSA [Suspect]
     Active Substance: ORITAVANCIN DIPHOSPHATE
     Indication: Arthritis bacterial
     Dosage: 1200 MILLIGRAM, SINGLE
     Route: 041
     Dates: start: 20230429, end: 20230429
  2. KIMYRSA [Suspect]
     Active Substance: ORITAVANCIN DIPHOSPHATE
     Dosage: 1200 MILLIGRAM, SINGLE
     Route: 041
     Dates: start: 20230508, end: 20230508

REACTIONS (5)
  - Back pain [Unknown]
  - Infusion related reaction [Unknown]
  - Off label use [Unknown]
  - Multiple use of single-use product [Unknown]
  - Incorrect product administration duration [Unknown]

NARRATIVE: CASE EVENT DATE: 20230508
